FAERS Safety Report 8135085-2 (Version None)
Quarter: 2012Q1

REPORT INFORMATION
  Report Type: 
  Country: None (occurrence: None)
  Receive Date: 20120214
  Receipt Date: 20120208
  Transmission Date: 20120608
  Serious: Yes (Hospitalization, Other)
  Sender: FDA-Public Use
  Company Number: GB-TEVA-321589ISR

PATIENT
  Age: 77 Year
  Sex: Female

DRUGS (7)
  1. CALCIUM CARBONATE [Concomitant]
     Dosage: LONG TERM. ONGOING.
     Route: 048
  2. TRIMETHOPRIM [Suspect]
     Indication: PROPHYLAXIS URINARY TRACT INFECTION
     Route: 048
     Dates: start: 20111208, end: 20120104
  3. SOLIFENACIN SUCCINATE [Concomitant]
     Dosage: ONGOING
     Route: 048
     Dates: start: 20111208
  4. MIRTAZAPINE [Concomitant]
     Dosage: LONG TERM. ONGOING.
     Route: 048
  5. MOVIPREP [Concomitant]
     Dosage: SACHETS. LONG TERM. ONGOING
     Route: 048
  6. SIMVASTATIN [Concomitant]
     Dosage: AT NIGHT. LONG TERM. ONGOING.
     Route: 048
  7. ASPIRIN [Concomitant]
     Dosage: LONG TERM. ONGOING.

REACTIONS (2)
  - NEPHROPATHY TOXIC [None]
  - BLOOD CREATININE INCREASED [None]
